FAERS Safety Report 5171840-9 (Version None)
Quarter: 2006Q4

REPORT INFORMATION
  Report Type: 
  Country: None (occurrence: None)
  Receive Date: 20061205
  Receipt Date: 20061120
  Transmission Date: 20070319
  Serious: Yes (Death)
  Sender: FDA-Public Use
  Company Number: 2006EN000189

PATIENT
  Age: 13 Year
  Sex: Female

DRUGS (1)
  1. ADAGEN [Suspect]
     Indication: DRUG USE FOR UNKNOWN INDICATION
     Dosage: 625 IU; BIW; IM
     Route: 030
     Dates: start: 20030522, end: 20061101

REACTIONS (1)
  - HEPATIC NEOPLASM MALIGNANT [None]
